FAERS Safety Report 14465630 (Version 2)
Quarter: 2018Q1

REPORT INFORMATION
  Report Type: Report from Study
  Country: US (occurrence: US)
  Receive Date: 20180131
  Receipt Date: 20180205
  Transmission Date: 20180509
  Serious: Yes (Other)
  Sender: FDA-Public Use
  Company Number: US-ROCHE-2062858

PATIENT
  Sex: Female

DRUGS (2)
  1. OCREVUS [Suspect]
     Active Substance: OCRELIZUMAB
     Dosage: SUBSEQUENT DOSE
     Route: 042
  2. OCREVUS [Suspect]
     Active Substance: OCRELIZUMAB
     Indication: MULTIPLE SCLEROSIS
     Dosage: ON 14/DEC/2017, THE PATIENT WAS PRESCRIBED WITH INTRAVENOUS OCRELIZUMAB INFUSION 300 MG TO BE ADMINI
     Route: 042

REACTIONS (4)
  - Urinary tract infection [Unknown]
  - Nephrolithiasis [Unknown]
  - Pain [Unknown]
  - Headache [Unknown]
